FAERS Safety Report 15927192 (Version 2)
Quarter: 2019Q1

REPORT INFORMATION
  Report Type: Spontaneous
  Country: US (occurrence: US)
  Receive Date: 20190205
  Receipt Date: 20190219
  Transmission Date: 20190417
  Serious: No
  Sender: FDA-Public Use
  Company Number: US-ALLERGAN-1849723US

PATIENT
  Age: 54 Year
  Sex: Female

DRUGS (9)
  1. MUSHROOM DROPS [Concomitant]
     Indication: IMMUNE SYSTEM DISORDER
     Dosage: UNK
     Route: 065
  2. THYROID MEDICATION [Concomitant]
     Active Substance: UNSPECIFIED INGREDIENT
     Indication: AUTOIMMUNE THYROIDITIS
     Dosage: UNK
     Route: 065
  3. COLLAGEN POWDER [Concomitant]
     Dosage: UNK
     Route: 048
  4. BOTOX COSMETIC [Suspect]
     Active Substance: ONABOTULINUMTOXINA
     Dosage: VERY LITTLE, SINGLE
     Route: 030
     Dates: start: 20181003, end: 20181003
  5. OMEGA 3 [Concomitant]
     Active Substance: OMEGA-3 FATTY ACIDS
     Dosage: UNK
     Route: 065
  6. PSYLLIUM [Concomitant]
     Active Substance: PLANTAGO SEED
     Dosage: UNK
     Route: 065
  7. BOTOX COSMETIC [Suspect]
     Active Substance: ONABOTULINUMTOXINA
     Indication: SKIN WRINKLING
     Dosage: UNK, SINGLE
     Route: 030
     Dates: start: 20181017, end: 20181017
  8. VITAMINS [Concomitant]
     Active Substance: VITAMINS
     Dosage: UNK
     Route: 048
  9. MULTIVITAMIN FOR WOMEN [Concomitant]
     Dosage: UNK
     Route: 048

REACTIONS (4)
  - Rash [Not Recovered/Not Resolved]
  - Eye allergy [Not Recovered/Not Resolved]
  - Injection site pain [Not Recovered/Not Resolved]
  - Drug ineffective [Unknown]

NARRATIVE: CASE EVENT DATE: 20181003
